FAERS Safety Report 5611197-X (Version None)
Quarter: 2008Q1

REPORT INFORMATION
  Report Type: 
  Country: None (occurrence: None)
  Receive Date: 20080129
  Receipt Date: 20080120
  Transmission Date: 20080703
  Serious: Yes (Other)
  Sender: FDA-Public Use
  Company Number: 2008SP001581

PATIENT
  Age: 50 Year
  Sex: Male

DRUGS (5)
  1. PEGINTERFERON ALFA-2B (S-P) [Suspect]
     Indication: HEPATITIS C
     Dosage: SC
     Route: 058
     Dates: start: 20070810, end: 20080118
  2. RIBAVIRIN [Suspect]
     Indication: HEPATITIS C
     Dates: start: 20070810, end: 20080118
  3. AMBIEN [Suspect]
     Indication: SLEEP DISORDER
  4. AMBIEN [Concomitant]
  5. PHENERGAN HCL [Concomitant]

REACTIONS (9)
  - BLOOD POTASSIUM DECREASED [None]
  - BURNING SENSATION [None]
  - DEHYDRATION [None]
  - NAUSEA [None]
  - NONSPECIFIC REACTION [None]
  - ORAL INTAKE REDUCED [None]
  - PRURITUS [None]
  - RECTAL HAEMORRHAGE [None]
  - SKIN EXFOLIATION [None]
